FAERS Safety Report 12505586 (Version 1)
Quarter: 2016Q2

REPORT INFORMATION
  Report Type: Spontaneous
  Country: FR (occurrence: FR)
  Receive Date: 20160628
  Receipt Date: 20160628
  Transmission Date: 20160815
  Serious: Yes (Life-Threatening, Hospitalization)
  Sender: FDA-Public Use
  Company Number: FR-PFIZER INC-2016317003

PATIENT
  Age: 83 Year
  Sex: Female

DRUGS (7)
  1. DALACINE [Suspect]
     Active Substance: CLINDAMYCIN HYDROCHLORIDE
     Dosage: 600 MG, 3X/DAY
     Route: 048
     Dates: end: 20160425
  2. CIFLOX /00697201/ [Suspect]
     Active Substance: CIPROFLOXACIN
     Dosage: 500 MG, 2X/DAY
     Route: 048
     Dates: end: 20160425
  3. SOTALOL. [Concomitant]
     Active Substance: SOTALOL
  4. PREVISCAN /00789001/ [Suspect]
     Active Substance: FLUINDIONE
     Dosage: 0.5 DF, 1X/DAY
     Route: 048
     Dates: start: 201504, end: 20160425
  5. LEXOMIL [Concomitant]
     Active Substance: BROMAZEPAM
  6. OMEPRAZOLE. [Concomitant]
     Active Substance: OMEPRAZOLE
  7. MIANSERIN [Concomitant]
     Active Substance: MIANSERIN

REACTIONS (3)
  - Melaena [Recovered/Resolved]
  - Anaemia [Recovered/Resolved]
  - International normalised ratio increased [Recovered/Resolved]

NARRATIVE: CASE EVENT DATE: 20160425
